FAERS Safety Report 23629396 (Version 1)
Quarter: 2024Q1

REPORT INFORMATION
  Report Type: Other
  Country: ID (occurrence: None)
  Receive Date: 20240313
  Receipt Date: 20240313
  Transmission Date: 20240409
  Serious: Yes (Hospitalization, Other)
  Sender: FDA-Public Use
  Company Number: ID-Square-000213

PATIENT
  Age: 68 Year
  Sex: Male

DRUGS (3)
  1. CALCIUM [Suspect]
     Active Substance: CALCIUM
     Indication: Product used for unknown indication
     Dosage: 500 MG FOR EACH 8 HOURS
  2. LEVOTHYROXINE [Suspect]
     Active Substance: LEVOTHYROXINE\LEVOTHYROXINE SODIUM
     Indication: Product used for unknown indication
     Dosage: 100 MCG ONCE DAILY
  3. CALCITRIOL [Suspect]
     Active Substance: CALCITRIOL
     Indication: Product used for unknown indication
     Dosage: 0.25 MCG TWICE A DAY

REACTIONS (3)
  - Treatment noncompliance [Recovered/Resolved]
  - Hypocalcaemia [Recovered/Resolved]
  - Transient ischaemic attack [Recovered/Resolved]
